FAERS Safety Report 6178811-4 (Version None)
Quarter: 2009Q2

REPORT INFORMATION
  Report Type: 
  Country: None (occurrence: None)
  Receive Date: 20090504
  Receipt Date: 20090312
  Transmission Date: 20091009
  Serious: No
  Sender: FDA-Public Use
  Company Number: US-ALEXION-A200900202

PATIENT
  Sex: Female

DRUGS (6)
  1. SOLIRIS [Suspect]
     Indication: PAROXYSMAL NOCTURNAL HAEMOGLOBINURIA
     Dosage: 600 MG, QW
     Route: 042
     Dates: start: 20090310
  2. TYLENOL (CAPLET) [Concomitant]
     Indication: PREMEDICATION
     Dosage: UNK
     Dates: start: 20090310
  3. TYLENOL W/ CODEINE [Concomitant]
     Indication: BACK PAIN
     Dosage: UNK
  4. CALCIUM [Concomitant]
     Dosage: UNK
     Route: 048
  5. GLUCOSAMINE [Concomitant]
     Indication: ARTHRITIS
     Dosage: UNK
     Route: 048
  6. VITAMIN E                          /00110501/ [Concomitant]
     Dosage: UNK
     Route: 048

REACTIONS (4)
  - BACK PAIN [None]
  - CONDITION AGGRAVATED [None]
  - HEADACHE [None]
  - WHITE BLOOD CELL COUNT DECREASED [None]
